FAERS Safety Report 8607109 (Version 4)
Quarter: 2014Q1

REPORT INFORMATION
  Report Type: Spontaneous
  Country: US (occurrence: US)
  Receive Date: 20120611
  Receipt Date: 20140127
  Transmission Date: 20141002
  Serious: Yes (Hospitalization, Other)
  Sender: FDA-Public Use
  Company Number: US-ASTRAZENECA-2012SE35139

PATIENT
  Age: 41 Year
  Sex: Female

DRUGS (24)
  1. NEXIUM [Suspect]
     Route: 048
  2. NEXIUM [Suspect]
     Route: 048
     Dates: start: 2005
  3. NEXIUM [Suspect]
     Route: 048
     Dates: start: 20100512
  4. PRILOSEC [Suspect]
     Route: 048
  5. PREVACID [Concomitant]
  6. ACIDAFLEX [Concomitant]
  7. CELEBREX [Concomitant]
     Dates: start: 20080728
  8. TYLENOL [Concomitant]
     Dates: start: 20090608
  9. GABAPENTIN [Concomitant]
     Dates: start: 20090710
  10. OXYCONTIN [Concomitant]
     Dates: start: 20090810
  11. FLEXERIL [Concomitant]
     Dates: start: 20090714
  12. FLEXERIL [Concomitant]
     Dates: start: 20090810
  13. RELAFEN [Concomitant]
     Dates: start: 20090810
  14. TOPROL [Concomitant]
     Dates: start: 20090810
  15. TOPROL [Concomitant]
     Dates: start: 20090529
  16. ZOLPIDEM TARTRATE [Concomitant]
     Dates: start: 20091130
  17. AMLODIPINE BESYLATE [Concomitant]
     Dates: start: 20091130
  18. TEMAZEPAM [Concomitant]
     Dates: start: 20100901
  19. FLUOXETINE HCL [Concomitant]
     Dates: start: 20100901
  20. MELOXICAM [Concomitant]
     Dates: start: 20110124
  21. DEXILANT DR [Concomitant]
     Dates: start: 20120208
  22. METRONIDAZOLE [Concomitant]
     Dates: start: 20061010
  23. CARISOPRODOL [Concomitant]
     Dates: start: 20080222
  24. METHYLPREDNISOLONE [Concomitant]
     Dates: start: 20081120

REACTIONS (8)
  - Lumbar vertebral fracture [Unknown]
  - Nerve injury [Unknown]
  - Osteoporosis [Unknown]
  - Depression [Unknown]
  - Lumbar radiculopathy [Unknown]
  - Mononeuropathy [Unknown]
  - Radiculitis lumbosacral [Unknown]
  - Intervertebral disc protrusion [Unknown]
